FAERS Safety Report 6498065-9 (Version None)
Quarter: 2009Q4

REPORT INFORMATION
  Report Type: 
  Country: None (occurrence: None)
  Receive Date: 20091125
  Receipt Date: 20090213
  Transmission Date: 20100525
  Serious: Yes (Other)
  Sender: FDA-Public Use
  Company Number: 2009BH001064

PATIENT
  Age: 54 Year
  Sex: Male

DRUGS (9)
  1. DIANEAL [Suspect]
     Indication: PERITONEAL DIALYSIS
     Dosage: 10 L;EVERY DAY;IP
     Route: 033
     Dates: start: 20051101
  2. LASIX [Concomitant]
  3. DIOVAN [Concomitant]
  4. ZEMPLAR [Concomitant]
  5. PHOSLO [Concomitant]
  6. COLACE [Concomitant]
  7. LOPRESSOR [Concomitant]
  8. NORVASC [Concomitant]
  9. LISINOPRIL [Concomitant]

REACTIONS (3)
  - PERITONEAL DIALYSIS COMPLICATION [None]
  - PERITONITIS [None]
  - PROCEDURAL COMPLICATION [None]
